FAERS Safety Report 7559616-6 (Version None)
Quarter: 2011Q2

REPORT INFORMATION
  Report Type: 
  Country: None (occurrence: None)
  Receive Date: 20110621
  Receipt Date: 20110607
  Transmission Date: 20111010
  Serious: Yes (Other)
  Sender: FDA-Public Use
  Company Number: FR-CELGENEUS-056-50794-11061479

PATIENT

DRUGS (6)
  1. PANOBINOSTAT [Suspect]
     Route: 048
  2. VIDAZA [Suspect]
     Dosage: 75 MILLIGRAM/SQ. METER
     Route: 065
  3. PANOBINOSTAT [Suspect]
  4. VIDAZA [Suspect]
  5. VIDAZA [Suspect]
  6. PANOBINOSTAT [Suspect]

REACTIONS (11)
  - ATRIAL FIBRILLATION [None]
  - DIARRHOEA [None]
  - ASTHENIA [None]
  - SEPTIC SHOCK [None]
  - EMBOLISM VENOUS [None]
  - THROMBOCYTOPENIA [None]
  - NAUSEA [None]
  - FATIGUE [None]
  - ARTHRITIS [None]
  - FEBRILE NEUTROPENIA [None]
  - VOMITING [None]
